FAERS Safety Report 18369456 (Version 1)
Quarter: 2020Q4

REPORT INFORMATION
  Report Type: Spontaneous
  Country: DE (occurrence: DE)
  Receive Date: 20201012
  Receipt Date: 20201012
  Transmission Date: 20210114
  Serious: Yes (Hospitalization)
  Sender: FDA-Public Use
  Company Number: DE-ROCHE-2690038

PATIENT
  Age: 48 Year
  Sex: Female

DRUGS (1)
  1. AVASTIN [Suspect]
     Active Substance: BEVACIZUMAB
     Indication: OVARIAN CANCER
     Route: 065

REACTIONS (12)
  - Restless legs syndrome [Unknown]
  - Decreased appetite [Not Recovered/Not Resolved]
  - Gastrointestinal inflammation [Recovered/Resolved]
  - Blood test abnormal [Not Recovered/Not Resolved]
  - Pelvic pain [Unknown]
  - Weight decreased [Unknown]
  - Arthralgia [Unknown]
  - Paraesthesia [Unknown]
  - Skin discolouration [Unknown]
  - Nausea [Not Recovered/Not Resolved]
  - Abdominal adhesions [Recovered/Resolved]
  - Intestinal obstruction [Recovered/Resolved]

NARRATIVE: CASE EVENT DATE: 202009
